FAERS Safety Report 25078486 (Version 1)
Quarter: 2025Q1

REPORT INFORMATION
  Report Type: Spontaneous
  Country: US (occurrence: None)
  Receive Date: 20250313
  Receipt Date: 20250313
  Transmission Date: 20250409
  Serious: Yes (Death, Hospitalization)
  Sender: FDA-CTU
  Company Number: None

PATIENT
  Age: 85 Year
  Sex: Female

DRUGS (27)
  1. TADALAFIL [Suspect]
     Active Substance: TADALAFIL
  2. TYVASO [Concomitant]
     Active Substance: TREPROSTINIL
     Dosage: 20MG QD ORAL
     Dates: start: 20210428, end: 20250104
  3. OXYGEN INTRANASAL [Concomitant]
  4. LEVOTHYROXINE [Concomitant]
     Active Substance: LEVOTHYROXINE
  5. FAMOTIDINE [Concomitant]
     Active Substance: FAMOTIDINE
  6. MEGESTROL [Concomitant]
     Active Substance: MEGESTROL
  7. MIRTAZAPINE [Concomitant]
     Active Substance: MIRTAZAPINE
  8. CLEARLAX [Concomitant]
     Active Substance: POLYETHYLENE GLYCOL 3350
  9. AMIODARONE [Concomitant]
     Active Substance: AMIODARONE
  10. DOCUSATE SODIUM [Concomitant]
     Active Substance: DOCUSATE SODIUM
  11. SENNOSIDES [Concomitant]
     Active Substance: SENNOSIDES
  12. NEPHRO VITE RX [Concomitant]
     Active Substance: ASCORBIC ACID\BIOTIN\CALCIUM PANTOTHENATE\CYANOCOBALAMIN\FOLIC ACID\NIACINAMIDE\PYRIDOXINE HYDROCHLO
  13. ACETAMNOPHEN [Concomitant]
  14. LORAZEPAM [Concomitant]
     Active Substance: LORAZEPAM
  15. PHENOBARBITAL [Concomitant]
     Active Substance: PHENOBARBITAL
  16. Bisacodyl Rect Supp [Concomitant]
  17. Atropine opht drop [Concomitant]
  18. HYDROMORPHONE [Concomitant]
     Active Substance: HYDROMORPHONE
  19. PANTOPRAZOLE [Concomitant]
     Active Substance: PANTOPRAZOLE
  20. PREDNISONE [Concomitant]
     Active Substance: PREDNISONE
  21. LOKELMA [Concomitant]
     Active Substance: SODIUM ZIRCONIUM CYCLOSILICATE
  22. TORSEMIDE [Concomitant]
     Active Substance: TORSEMIDE
  23. AMLODIPINE [Concomitant]
     Active Substance: AMLODIPINE BESYLATE
  24. Cyclogyl Opht Drop [Concomitant]
  25. ALPRAZOLAM [Concomitant]
     Active Substance: ALPRAZOLAM
  26. MEPRON [Concomitant]
     Active Substance: ATOVAQUONE
  27. FERROUS SULFATE [Concomitant]
     Active Substance: FERROUS SULFATE

REACTIONS (2)
  - Respiratory failure [None]
  - General physical health deterioration [None]

NARRATIVE: CASE EVENT DATE: 20250104
